FAERS Safety Report 5256276-4 (Version None)
Quarter: 2007Q1

REPORT INFORMATION
  Report Type: 
  Country: None (occurrence: None)
  Receive Date: 20070302
  Receipt Date: 20070302
  Transmission Date: 20070707
  Serious: Yes (Disabling)
  Sender: FDA-Public Use
  Company Number: None

PATIENT
  Sex: Male
  Weight: 78.0187 kg

DRUGS (1)
  1. ZICAM ZINCUM GLUCONICUM 2X MATRIXX INITIATIVES, INC. [Suspect]
     Indication: NASOPHARYNGITIS
     Dosage: 2 DOSES/PER NOSTRIL  1 NASAL
     Route: 045
     Dates: start: 20061201, end: 20061206

REACTIONS (4)
  - LACRIMATION INCREASED [None]
  - NASAL DISCOMFORT [None]
  - PAROSMIA [None]
  - PHARMACEUTICAL PRODUCT COMPLAINT [None]
